FAERS Safety Report 12544833 (Version 2)
Quarter: 2016Q3

REPORT INFORMATION
  Report Type: Spontaneous
  Country: US (occurrence: US)
  Receive Date: 20160711
  Receipt Date: 20160718
  Transmission Date: 20161109
  Serious: Yes (Other)
  Sender: FDA-Public Use
  Company Number: ALCN2016US004712

PATIENT
  Age: 71 Year
  Sex: Female

DRUGS (3)
  1. BSS [Suspect]
     Active Substance: CALCIUM CHLORIDE\MAGNESIUM CHLORIDE\POTASSIUM CHLORIDE\SODIUM ACETATE\SODIUM CHLORIDE\SODIUM CITRATE
     Indication: CATARACT OPERATION
     Dosage: UNK
     Route: 047
     Dates: start: 20160627, end: 20160627
  2. VIGAMOX [Suspect]
     Active Substance: MOXIFLOXACIN HYDROCHLORIDE
     Indication: CATARACT OPERATION
     Route: 047
  3. BETADINE [Suspect]
     Active Substance: POVIDONE-IODINE
     Indication: CATARACT OPERATION
     Route: 047

REACTIONS (8)
  - Off label use [Unknown]
  - Fibrin [Unknown]
  - Toxic anterior segment syndrome [Unknown]
  - Vision blurred [Unknown]
  - Visual acuity reduced [Unknown]
  - Conjunctival hyperaemia [Unknown]
  - Anterior chamber disorder [Unknown]
  - Hypopyon [Unknown]

NARRATIVE: CASE EVENT DATE: 20160627
